FAERS Safety Report 19924859 (Version 1)
Quarter: 2021Q4

REPORT INFORMATION
  Report Type: Spontaneous
  Country: US (occurrence: US)
  Receive Date: 20211006
  Receipt Date: 20211006
  Transmission Date: 20220303
  Serious: Yes (Death, Hospitalization, Other)
  Sender: FDA-Public Use
  Company Number: US-AMGEN-USASP2021151487

PATIENT

DRUGS (6)
  1. MVASI [Suspect]
     Active Substance: BEVACIZUMAB-AWWB
     Indication: Colorectal cancer
     Dosage: UNK MILLIGRAM/KILOGRAM, PER 14/21 DAYS
     Route: 065
  2. MVASI [Suspect]
     Active Substance: BEVACIZUMAB-AWWB
     Indication: Neoplasm malignant
  3. MVASI [Suspect]
     Active Substance: BEVACIZUMAB-AWWB
     Indication: Glioblastoma
  4. MVASI [Suspect]
     Active Substance: BEVACIZUMAB-AWWB
     Indication: Hepatocellular carcinoma
  5. MVASI [Suspect]
     Active Substance: BEVACIZUMAB-AWWB
     Indication: Non-small cell lung cancer
  6. MVASI [Suspect]
     Active Substance: BEVACIZUMAB-AWWB
     Indication: Off label use

REACTIONS (14)
  - Death [Fatal]
  - Cerebral haemorrhage [Unknown]
  - Hypertension [Unknown]
  - Gastrointestinal haemorrhage [Unknown]
  - Deep vein thrombosis [Unknown]
  - Pulmonary embolism [Unknown]
  - Myocardial infarction [Unknown]
  - Epistaxis [Unknown]
  - Embolism venous [Unknown]
  - Embolism arterial [Unknown]
  - Disease progression [Unknown]
  - Off label use [Unknown]
  - Hospice care [Unknown]
  - Proteinuria [Unknown]
